FAERS Safety Report 7155100-2 (Version None)
Quarter: 2010Q4

REPORT INFORMATION
  Report Type: 
  Country: None (occurrence: None)
  Receive Date: 20101214
  Receipt Date: 20091223
  Transmission Date: 20110411
  Serious: Yes (Other)
  Sender: FDA-Public Use
  Company Number: US-AMGEN-QUU373889

PATIENT

DRUGS (2)
  1. ENBREL [Suspect]
     Indication: RHEUMATOID ARTHRITIS
     Dosage: 25 MG, QWK
     Dates: start: 20080101, end: 20090601
  2. REMICADE [Suspect]
     Indication: RHEUMATOID ARTHRITIS
     Dosage: UNK UNK, UNK
     Route: 042
     Dates: end: 20080101

REACTIONS (7)
  - ALOPECIA [None]
  - DYSPHAGIA [None]
  - HAND DEFORMITY [None]
  - LEUKOPENIA [None]
  - LUNG NEOPLASM MALIGNANT [None]
  - PAIN [None]
  - SKIN HYPERPIGMENTATION [None]
